FAERS Safety Report 25460859 (Version 1)
Quarter: 2025Q2

REPORT INFORMATION
  Report Type: Report from Study
  Country: US (occurrence: US)
  Receive Date: 20250620
  Receipt Date: 20250620
  Transmission Date: 20250717
  Serious: Yes (Other)
  Sender: GILEAD
  Company Number: US-GILEAD-2025-0705244

PATIENT
  Age: 47 Year
  Sex: Female

DRUGS (3)
  1. AMBRISENTAN [Suspect]
     Active Substance: AMBRISENTAN
     Indication: Pulmonary arterial hypertension
     Route: 065
  2. REMODULIN [Suspect]
     Active Substance: TREPROSTINIL
     Indication: Pulmonary arterial hypertension
     Dosage: 0.096 UG/KG, QD AT A INFUSION RATE OF 0.054, 3 ML EVERY 48 HOURS
     Route: 058
  3. OPSUMIT [Suspect]
     Active Substance: MACITENTAN
     Indication: Pulmonary arterial hypertension
     Route: 065

REACTIONS (18)
  - Carditis [Not Recovered/Not Resolved]
  - Dyspnoea [Recovered/Resolved]
  - Vaginal haemorrhage [Recovered/Resolved]
  - Mental disorder [Unknown]
  - Anxiety [Unknown]
  - Dizziness [Recovered/Resolved]
  - Illness [Recovered/Resolved]
  - Drug hypersensitivity [Not Recovered/Not Resolved]
  - Emotional disorder [Not Recovered/Not Resolved]
  - Joint swelling [Not Recovered/Not Resolved]
  - Headache [Not Recovered/Not Resolved]
  - Diarrhoea [Not Recovered/Not Resolved]
  - Nausea [Not Recovered/Not Resolved]
  - Hyperhidrosis [Recovered/Resolved]
  - Chest pain [Unknown]
  - Patient-device incompatibility [Unknown]
  - Incorrect drug administration rate [Unknown]
  - Device programming error [Unknown]
